FAERS Safety Report 6101214-5 (Version None)
Quarter: 2009Q1

REPORT INFORMATION
  Report Type: 
  Country: None (occurrence: None)
  Receive Date: 20090227
  Receipt Date: 20080703
  Transmission Date: 20090719
  Serious: Yes (Other)
  Sender: FDA-Public Use
  Company Number: 2008S1011829

PATIENT
  Age: 31 Year
  Sex: Female

DRUGS (1)
  1. AMNESTEEM [Suspect]
     Indication: ACNE
     Dosage: 40 MG;TWICE A DAY;ORAL
     Route: 048
     Dates: start: 20080428, end: 20080612

REACTIONS (3)
  - HYPERSENSITIVITY [None]
  - RASH [None]
  - URTICARIA [None]
